FAERS Safety Report 17264303 (Version 5)
Quarter: 2020Q4

REPORT INFORMATION
  Report Type: Spontaneous
  Country: CA (occurrence: CA)
  Receive Date: 20200113
  Receipt Date: 20201230
  Transmission Date: 20210113
  Serious: Yes (Hospitalization, Other)
  Sender: FDA-Public Use
  Company Number: CA-MYLANLABS-2020M1003402

PATIENT
  Sex: Female
  Weight: 82 kg

DRUGS (3)
  1. EPIVAL [Suspect]
     Active Substance: DIVALPROEX SODIUM
     Indication: BIPOLAR DISORDER
     Dosage: TWICE A DAY. ONE IN THE MORNING AND NIGHT
     Route: 048
  2. EPIVAL [Suspect]
     Active Substance: DIVALPROEX SODIUM
     Dosage: UNK, BID (ONE IN THE MORNING AND NIGHT)
     Route: 048
  3. ABILIFY [Concomitant]
     Active Substance: ARIPIPRAZOLE
     Indication: NERVOUSNESS
     Dosage: UNK
     Route: 065

REACTIONS (10)
  - Back pain [Unknown]
  - Nervousness [Unknown]
  - Product dose omission issue [Unknown]
  - Somnolence [Unknown]
  - Confusional state [Unknown]
  - Weight increased [Unknown]
  - Bipolar disorder [Unknown]
  - Fatigue [Unknown]
  - Constipation [Unknown]
  - Weight decreased [Unknown]
